FAERS Safety Report 8234667-7 (Version None)
Quarter: 2012Q1

REPORT INFORMATION
  Report Type: 
  Country: None (occurrence: None)
  Receive Date: 20120326
  Receipt Date: 20120316
  Transmission Date: 20120608
  Serious: Yes (Death)
  Sender: FDA-Public Use
  Company Number: MX-PFIZER INC-2012071446

PATIENT
  Age: 6 Year
  Sex: Male

DRUGS (8)
  1. VITAMIN K TAB [Concomitant]
     Indication: GASTROINTESTINAL HAEMORRHAGE
     Dosage: 0.3 MG/KG, 1X/DAY
     Route: 042
     Dates: start: 20120123
  2. VFEND [Suspect]
     Indication: BRONCHOPULMONARY ASPERGILLOSIS
     Dosage: 12 MG/KG, 2X/DAY
     Route: 042
     Dates: start: 20120222
  3. CIPROFLOXACIN [Concomitant]
     Indication: SEPSIS
     Dosage: 20 MG/KG, 2X/DAY
     Route: 042
     Dates: start: 20120220, end: 20120224
  4. AMPHOTERICIN B [Concomitant]
     Indication: CANDIDIASIS
     Dosage: UNK
     Route: 042
     Dates: start: 20120209, end: 20120222
  5. OMEPRAZOLE [Concomitant]
     Indication: GASTRITIS
     Dosage: 1 MG, 2X/DAY
     Route: 042
     Dates: start: 20120124
  6. SULFAMETHOXAZOLE + TRIMETHOPRIM [Concomitant]
     Indication: SEPSIS
     Dosage: 20 MG/KG, 3X/DAY
     Dates: start: 20120227
  7. MEROPENEM [Concomitant]
     Indication: SEPSIS
     Dosage: 100 MG/KG, 3X/DAY
     Route: 042
     Dates: start: 20120207, end: 20120224
  8. VANCOMYCIN [Concomitant]
     Indication: SEPSIS
     Dosage: 40 MG/KG, 4X/DAY
     Route: 042
     Dates: start: 20120213, end: 20120224

REACTIONS (2)
  - MEDICATION ERROR [None]
  - PULMONARY HAEMORRHAGE [None]
